FAERS Safety Report 5657379-2 (Version None)
Quarter: 2008Q1

REPORT INFORMATION
  Report Type: 
  Country: None (occurrence: None)
  Receive Date: 20080310
  Receipt Date: 20080228
  Transmission Date: 20080703
  Serious: Yes (Death, Other)
  Sender: FDA-Public Use
  Company Number: PHBS2008US02877

PATIENT
  Age: 35 Year
  Sex: Male

DRUGS (4)
  1. CYCLOSPORINE [Suspect]
     Indication: LIVER TRANSPLANT
     Route: 065
  2. AZATHIOPRINE [Suspect]
     Indication: LIVER TRANSPLANT
     Route: 065
  3. PREDNISOLONE [Suspect]
     Indication: LIVER TRANSPLANT
  4. IMIPENEM [Concomitant]

REACTIONS (5)
  - CYTOMEGALOVIRUS HEPATITIS [None]
  - MYOCARDIAL INFARCTION [None]
  - NEPHROPATHY TOXIC [None]
  - PNEUMONIA [None]
  - POST PROCEDURAL COMPLICATION [None]
